FAERS Safety Report 9897631 (Version 1)
Quarter: 2014Q1

REPORT INFORMATION
  Report Type: Spontaneous
  Country: CA (occurrence: CA)
  Receive Date: 20140214
  Receipt Date: 20140214
  Transmission Date: 20141002
  Serious: Yes (Other)
  Sender: FDA-Public Use
  Company Number: CA-BEH-2014040543

PATIENT
  Age: 59 Year
  Sex: Female

DRUGS (1)
  1. SCIG [Suspect]
     Indication: IMMUNODEFICIENCY COMMON VARIABLE
     Route: 058

REACTIONS (4)
  - Abdominal abscess [Recovering/Resolving]
  - Subcutaneous abscess [Recovering/Resolving]
  - Haematoma infection [Recovering/Resolving]
  - Vascular injury [Recovering/Resolving]
